FAERS Safety Report 12179542 (Version 1)
Quarter: 2016Q1

REPORT INFORMATION
  Report Type: Spontaneous
  Country: JP (occurrence: LS)
  Receive Date: 20160314
  Receipt Date: 20160314
  Transmission Date: 20160526
  Serious: Yes (Death, Other)
  Sender: FDA-Public Use
  Company Number: LS-B.I. PHARMACEUTICALS,INC./RIDGEFIELD-2016-BI-15632NB

PATIENT
  Age: 72 Year
  Sex: Male
  Weight: 64 kg

DRUGS (7)
  1. LOCOID [Concomitant]
     Active Substance: HYDROCORTISONE BUTYRATE
     Indication: PRODUCT USED FOR UNKNOWN INDICATION
     Route: 065
     Dates: start: 20150126, end: 20160227
  2. GILOTRIF [Suspect]
     Active Substance: AFATINIB
     Indication: LUNG ADENOCARCINOMA
     Dosage: 40 MG
     Route: 048
     Dates: start: 20141125, end: 20150304
  3. ZOLPIDEM TARTRATE. [Concomitant]
     Active Substance: ZOLPIDEM TARTRATE
     Indication: INSOMNIA
     Dosage: 5 MG
     Route: 048
     Dates: start: 20141118, end: 20160227
  4. GASTER [Concomitant]
     Active Substance: FAMOTIDINE
     Indication: GASTRITIS
     Dosage: 20 MG
     Route: 048
     Dates: start: 20150205, end: 20160227
  5. HIRUDOID [Concomitant]
     Active Substance: GLYCOSAMINOGLYCANS
     Indication: PRODUCT USED FOR UNKNOWN INDICATION
     Route: 065
     Dates: start: 20141218, end: 20160227
  6. GILOTRIF [Suspect]
     Active Substance: AFATINIB
     Dosage: 30 MG
     Route: 048
     Dates: start: 20150305, end: 20160227
  7. LOPERAMIDE [Concomitant]
     Active Substance: LOPERAMIDE
     Indication: PRODUCT USED FOR UNKNOWN INDICATION
     Route: 048
     Dates: start: 20141125, end: 20160227

REACTIONS (5)
  - Tumour haemorrhage [Fatal]
  - Cardio-respiratory arrest [Fatal]
  - Respiratory arrest [Unknown]
  - Loss of consciousness [Unknown]
  - Pyrexia [Unknown]

NARRATIVE: CASE EVENT DATE: 20160227
